FAERS Safety Report 10157943 (Version 4)
Quarter: 2014Q2

REPORT INFORMATION
  Report Type: Spontaneous
  Country: US (occurrence: US)
  Receive Date: 20140507
  Receipt Date: 20140625
  Transmission Date: 20141212
  Serious: Yes (Other)
  Sender: FDA-Public Use
  Company Number: US-GLAXOSMITHKLINE-A1070179A

PATIENT
  Age: 89 Year
  Sex: Female

DRUGS (1)
  1. ADVAIR [Suspect]
     Indication: CHRONIC OBSTRUCTIVE PULMONARY DISEASE
     Dosage: 1PUFF TWICE PER DAY
     Route: 055
     Dates: start: 20101007

REACTIONS (6)
  - Glaucoma surgery [Recovered/Resolved]
  - Nasopharyngitis [Recovered/Resolved]
  - Ear discomfort [Recovered/Resolved]
  - Malaise [Recovered/Resolved]
  - Agitation [Unknown]
  - Hearing impaired [Unknown]
